FAERS Safety Report 10155670 (Version 1)
Quarter: 2014Q2

REPORT INFORMATION
  Report Type: Spontaneous
  Country: IE (occurrence: IE)
  Receive Date: 20140506
  Receipt Date: 20140506
  Transmission Date: 20141212
  Serious: Yes (Death)
  Sender: FDA-Public Use
  Company Number: IE-GLAXOSMITHKLINE-B0990355A

PATIENT
  Sex: Female

DRUGS (1)
  1. ELTROMBOPAG [Suspect]
     Indication: IMMUNE THROMBOCYTOPENIC PURPURA
     Route: 065

REACTIONS (1)
  - Myocardial infarction [Fatal]
